FAERS Safety Report 6774721-X (Version None)
Quarter: 2010Q2

REPORT INFORMATION
  Report Type: 
  Country: None (occurrence: None)
  Receive Date: 20100617
  Receipt Date: 20100615
  Transmission Date: 20101027
  Serious: Yes (Hospitalization)
  Sender: FDA-Public Use
  Company Number: GB-ROCHE-709044

PATIENT
  Sex: Female
  Weight: 91.9 kg

DRUGS (4)
  1. BEVACIZUMAB [Suspect]
     Dosage: BEVACIZUMAB 400 MGX 3. THERAPY DELAYED/HOLD AT PRESENT
     Route: 042
     Dates: start: 20100413
  2. TRASTUZUMAB [Suspect]
     Dosage: THERAPY DELAYED/HOLD AT PRESENT TRASTUZUMAB 150 MGX 4
     Route: 042
     Dates: start: 20100413
  3. DOCETAXEL [Suspect]
     Dosage: DOCETAXEL 80 MGX 2  FORM: VIAL.THERAPY DELAYED/HOLD
     Route: 042
     Dates: start: 20100413
  4. CARBOPLATIN [Suspect]
     Dosage: DOSE LEVEL 05 AUC, TOTAL DOSE: 675 MG, FORM VIAL. LAST DOSE RECEIVED PRIOR TO SAE ON 25 MAY 2010
     Route: 042
     Dates: start: 20100413

REACTIONS (1)
  - SUPRAVENTRICULAR TACHYCARDIA [None]
